FAERS Safety Report 4360966-5 (Version None)
Quarter: 2004Q2

REPORT INFORMATION
  Report Type: 
  Country: None (occurrence: None)
  Receive Date: 20040517
  Receipt Date: 20040505
  Transmission Date: 20050107
  Serious: Yes (Hospitalization)
  Sender: FDA-Public Use
  Company Number: STA-AE-03-MTX-124

PATIENT
  Sex: Female

DRUGS (2)
  1. METHOTREXATE [Suspect]
     Indication: RHEUMATOID ARTHRITIS
     Dates: end: 20031101
  2. ENBREL (ETANERCEPT, INJECTION) [Suspect]
     Indication: RHEUMATOID ARTHRITIS
     Dosage: 25 MG 2 X PER 1 WK, SC
     Route: 058
     Dates: start: 20030601, end: 20031101

REACTIONS (1)
  - NON-HODGKIN'S LYMPHOMA [None]
